FAERS Safety Report 9168294 (Version 1)
Quarter: 2013Q1

REPORT INFORMATION
  Report Type: Spontaneous
  Country: US (occurrence: US)
  Receive Date: 20130318
  Receipt Date: 20130318
  Transmission Date: 20140127
  Serious: No
  Sender: FDA-Public Use
  Company Number: US-PFIZER INC-2013087650

PATIENT
  Age: 78 Year
  Sex: Female
  Weight: 87.98 kg

DRUGS (13)
  1. CELEBREX [Suspect]
     Indication: SPONDYLITIS
     Dosage: 200MG DAILY
     Dates: end: 201303
  2. PLAVIX [Concomitant]
     Indication: CARDIAC DISORDER
     Dosage: 75MG DAILY
  3. TOPROL XL [Concomitant]
     Indication: CARDIAC DISORDER
     Dosage: 50 MG DAILY
  4. TEKTURNA [Concomitant]
     Indication: BLOOD PRESSURE ABNORMAL
     Dosage: 300 MG DAILY
  5. DIOVAN [Concomitant]
     Indication: BLOOD PRESSURE ABNORMAL
     Dosage: 80 MG DAILY
  6. LIPITOR [Concomitant]
     Indication: BLOOD CHOLESTEROL INCREASED
     Dosage: 20 MG DAILY
  7. VENLAFAXINE [Concomitant]
     Indication: DEPRESSION
     Dosage: 37.5 MG DAILY
  8. ISOSORBIDE MONONITRATE [Concomitant]
     Dosage: 30 MG DAILY
  9. AMLODIPINE [Concomitant]
     Dosage: 5 MG DAILY
  10. OMEPRAZOLE [Concomitant]
     Indication: GASTROOESOPHAGEAL REFLUX DISEASE
     Dosage: 20 MG, 2X/DAY
  11. ASPIRIN [Concomitant]
     Indication: CARDIAC DISORDER
     Dosage: 81 MG DAILY
  12. CENTRUM SILVER WOMEN^S 50+ [Concomitant]
     Dosage: UNK, 1X/DAY
  13. PROAIR HFA [Concomitant]
     Indication: CHRONIC OBSTRUCTIVE PULMONARY DISEASE
     Dosage: UNK, AS NEEDED

REACTIONS (1)
  - Pain [Not Recovered/Not Resolved]
